FAERS Safety Report 5010288-4 (Version None)
Quarter: 2006Q2

REPORT INFORMATION
  Report Type: 
  Country: None (occurrence: None)
  Receive Date: 20060517
  Receipt Date: 20060511
  Transmission Date: 20061013
  Serious: Yes (Other)
  Sender: FDA-Public Use
  Company Number: HQWYE755410FEB06

PATIENT
  Age: 5 Year
  Sex: Male

DRUGS (2)
  1. BENEFIX [Suspect]
     Indication: FACTOR IX DEFICIENCY
     Dosage: 500 OR 1000 IU ON DEMAND FOR A TOTAL OF 7
     Dates: start: 20040425, end: 20060208
  2. BENEFIX [Suspect]

REACTIONS (4)
  - ANTI FACTOR IX ANTIBODY POSITIVE [None]
  - DRUG INEFFECTIVE [None]
  - FACTOR IX INHIBITION [None]
  - HAEMATEMESIS [None]
